FAERS Safety Report 8054848-5 (Version None)
Quarter: 2012Q1

REPORT INFORMATION
  Report Type: 
  Country: None (occurrence: None)
  Receive Date: 20120119
  Receipt Date: 20120111
  Transmission Date: 20120608
  Serious: No
  Sender: FDA-Public Use
  Company Number: DE-JNJFOC-20111111267

PATIENT
  Sex: Female
  Weight: 85 kg

DRUGS (3)
  1. AMITRIPTYLINE HCL [Concomitant]
  2. CORVO [Concomitant]
  3. DURAGESIC-100 [Suspect]
     Indication: PRODUCT USED FOR UNKNOWN INDICATION
     Route: 062
     Dates: start: 20070101

REACTIONS (4)
  - PRODUCT ADHESION ISSUE [None]
  - APPLICATION SITE REACTION [None]
  - WRONG TECHNIQUE IN DRUG USAGE PROCESS [None]
  - APPLICATION SITE EXFOLIATION [None]
